FAERS Safety Report 19579801 (Version 1)
Quarter: 2021Q3

REPORT INFORMATION
  Report Type: Spontaneous
  Country: ES (occurrence: ES)
  Receive Date: 20210719
  Receipt Date: 20210719
  Transmission Date: 20211014
  Serious: Yes (Other)
  Sender: FDA-Public Use
  Company Number: ES-PFIZER INC-2021841176

PATIENT
  Age: 80 Year
  Sex: Female

DRUGS (3)
  1. LYRICA [Suspect]
     Active Substance: PREGABALIN
     Dosage: 25 MG
     Dates: start: 20210618, end: 202106
  2. LYRICA [Suspect]
     Active Substance: PREGABALIN
     Dosage: 25 MG, 3X/DAY
     Dates: start: 202106
  3. LYRICA [Suspect]
     Active Substance: PREGABALIN
     Dosage: 25 MG, 1X/DAY, AT NIGHT
     Dates: start: 20210615, end: 20210617

REACTIONS (8)
  - Pain [Unknown]
  - Peripheral swelling [Unknown]
  - Pruritus [Unknown]
  - Malaise [Unknown]
  - Fluid retention [Unknown]
  - Urticaria [Unknown]
  - Drug ineffective [Unknown]
  - Paralysis [Unknown]

NARRATIVE: CASE EVENT DATE: 20210705
